FAERS Safety Report 8401721-6 (Version None)
Quarter: 2012Q2

REPORT INFORMATION
  Report Type: 
  Country: None (occurrence: None)
  Receive Date: 20120529
  Receipt Date: 20120515
  Transmission Date: 20120825
  Serious: Yes (Other)
  Sender: FDA-Public Use
  Company Number: 7133647

PATIENT
  Age: 55 Year
  Sex: Female

DRUGS (1)
  1. LEVOTHYROXINE SODIUM [Suspect]
     Indication: THYROIDECTOMY
     Dosage: 1 DF (1 DF, 1 IN 1 D)
     Route: 048
     Dates: start: 20060101

REACTIONS (2)
  - CHOLECYSTITIS [None]
  - LIVER DISORDER [None]
